FAERS Safety Report 7355905-9 (Version None)
Quarter: 2011Q1

REPORT INFORMATION
  Report Type: 
  Country: None (occurrence: None)
  Receive Date: 20110311
  Receipt Date: 20110311
  Transmission Date: 20110831
  Serious: No
  Sender: FDA-Public Use
  Company Number: None

PATIENT

DRUGS (9)
  1. METOPROLOL TARTRATE [Concomitant]
  2. SALMON OIL [Concomitant]
  3. NORVASC [Concomitant]
  4. LOTENSIN [Concomitant]
  5. ASCORBIC ACID [Concomitant]
  6. CALCIUM [Concomitant]
  7. AUGMENTIN [Suspect]
     Dates: start: 20071031, end: 20071106
  8. LIPITOR [Concomitant]
  9. PREDNISONE [Concomitant]

REACTIONS (1)
  - AUTOIMMUNE HEPATITIS [None]
